FAERS Safety Report 5724267-2 (Version None)
Quarter: 2008Q2

REPORT INFORMATION
  Report Type: 
  Country: None (occurrence: None)
  Receive Date: 20080424
  Receipt Date: 20071008
  Transmission Date: 20081010
  Serious: Yes (Other)
  Sender: FDA-Public Use
  Company Number: TEST00207034425

PATIENT
  Sex: Male
  Weight: 61.6892 kg

DRUGS (7)
  1. ANDROGEL [Suspect]
     Indication: ASTHENIA
     Dosage: 2.5 GRAM(S) QD TRANSCUTANEOUS DAILY DOSE: 2.5 GRAM(S)
     Route: 062
     Dates: start: 20071001
  2. ANDROGEL [Suspect]
     Indication: BLOOD TESTOSTERONE DECREASED
     Dosage: 2.5 GRAM(S) QD TRANSCUTANEOUS DAILY DOSE: 2.5 GRAM(S)
     Route: 062
     Dates: start: 20071001
  3. ANDROGEL [Suspect]
     Indication: FATIGUE
     Dosage: 2.5 GRAM(S) QD TRANSCUTANEOUS DAILY DOSE: 2.5 GRAM(S)
     Route: 062
     Dates: start: 20071001
  4. AVODART [Concomitant]
  5. LISINOPRIL [Concomitant]
  6. REQUIP [Concomitant]
  7. AMANTADINE HCL [Concomitant]

REACTIONS (2)
  - DRUG INEFFECTIVE [None]
  - HYPERTENSION [None]
